FAERS Safety Report 7150261-3 (Version None)
Quarter: 2010Q4

REPORT INFORMATION
  Report Type: 
  Country: None (occurrence: None)
  Receive Date: 20101207
  Receipt Date: 20101207
  Transmission Date: 20110411
  Serious: Yes (Hospitalization, Disabling)
  Sender: FDA-Public Use
  Company Number: None

PATIENT
  Age: 66 Year
  Sex: Male
  Weight: 84.4 kg

DRUGS (9)
  1. WARFARIN SODIUM [Suspect]
     Indication: ATRIAL FIBRILLATION
     Dosage: 5MG (MTTHFSU) + 7.5MG (WED/SAT) DAILY AS NOTED ORAL
     Route: 048
     Dates: start: 20070221, end: 20100430
  2. TACROLIMUS [Concomitant]
  3. AMIODARONE HCL [Suspect]
  4. HYDROCODONE BITARTRATE AND ACETAMINOPHEN [Concomitant]
  5. PROCHLOROPERAZINE [Concomitant]
  6. CARVEDILOL [Concomitant]
  7. MYCOPHENOLATE MOFETIL [Concomitant]
  8. ESOMEPRAZOLE [Concomitant]
  9. PREDNISONE [Concomitant]

REACTIONS (7)
  - ANURIA [None]
  - COMPLICATIONS OF TRANSPLANTED KIDNEY [None]
  - HAEMATOCRIT DECREASED [None]
  - HAEMODIALYSIS [None]
  - HAEMOGLOBIN DECREASED [None]
  - RENAL FAILURE ACUTE [None]
  - RENAL HAEMATOMA [None]
